FAERS Safety Report 9795934 (Version 2)
Quarter: 2014Q1

REPORT INFORMATION
  Report Type: Spontaneous
  Country: AU (occurrence: AU)
  Receive Date: 20140103
  Receipt Date: 20140228
  Transmission Date: 20141002
  Serious: Yes (Hospitalization)
  Sender: FDA-Public Use
  Company Number: AU-NOVOPROD-396746

PATIENT
  Age: 73 Year
  Sex: Male

DRUGS (2)
  1. ACTRAPID [Suspect]
     Indication: DIABETES MELLITUS
     Dosage: 70 IU, QID
     Route: 065
  2. PROTAPHANE [Suspect]
     Indication: DIABETES MELLITUS
     Dosage: UNK (AT NIGHT)
     Route: 065

REACTIONS (4)
  - Dyspnoea [Unknown]
  - Fracture pain [Unknown]
  - Blood glucose increased [Unknown]
  - Drug ineffective [Unknown]
